FAERS Safety Report 8298619-3 (Version None)
Quarter: 2012Q2

REPORT INFORMATION
  Report Type: 
  Country: None (occurrence: None)
  Receive Date: 20120419
  Receipt Date: 20120416
  Transmission Date: 20120825
  Serious: Yes (Hospitalization)
  Sender: FDA-Public Use
  Company Number: HR-BAYER-2012-036270

PATIENT
  Age: 64 Year
  Sex: Female
  Weight: 60 kg

DRUGS (10)
  1. POTASSIUM CHLORIDE [Concomitant]
     Dosage: UNK
     Dates: start: 20110601
  2. LACIPIL [Concomitant]
     Dosage: DAILY DOSE 4 MG
     Route: 048
     Dates: start: 20110601
  3. ASPIRIN [Suspect]
     Indication: INFLUENZA
     Dosage: UNK
     Dates: start: 20120301, end: 20120301
  4. WARFARIN SODIUM [Interacting]
     Indication: MITRAL VALVE REPLACEMENT
     Dosage: UNK
     Route: 048
     Dates: start: 19960101
  5. COAXIL [Concomitant]
     Dosage: DAILY DOSE 12.5 MG
     Route: 048
     Dates: start: 20110601
  6. ALDACTONE [Concomitant]
     Dosage: DAILY DOSE 25 MG
     Route: 048
     Dates: start: 20110601
  7. FUROSEMIDE [Concomitant]
     Dosage: UNK
     Dates: start: 20110601
  8. BISOPROLOL FUMARATE [Concomitant]
     Dosage: DAILY DOSE 2.5 MG
     Route: 048
     Dates: start: 20110601
  9. LANITOP [Concomitant]
     Dosage: DAILY DOSE .1 MG
     Route: 048
     Dates: start: 20110601
  10. RAMIPRIL [Concomitant]
     Dosage: DAILY DOSE 1.25 MG
     Route: 048
     Dates: start: 20110601

REACTIONS (1)
  - INTERNATIONAL NORMALISED RATIO INCREASED [None]
